FAERS Safety Report 9485000 (Version 1)
Quarter: 2013Q3

REPORT INFORMATION
  Report Type: Spontaneous
  Country: US (occurrence: US)
  Receive Date: 20130828
  Receipt Date: 20130828
  Transmission Date: 20140515
  Serious: No
  Sender: FDA-Public Use
  Company Number: US-ABBOTT-13P-163-1128832-00

PATIENT
  Age: 68 Year
  Sex: Male
  Weight: 88.53 kg

DRUGS (3)
  1. ANDROGEL [Suspect]
     Indication: BLOOD TESTOSTERONE DECREASED
     Dosage: 40.5 MILLIGRAMS DAILY
     Route: 061
     Dates: start: 201111, end: 201307
  2. ANDROGEL [Suspect]
     Dosage: 81 MILLIGRAMS DAILY
     Route: 061
     Dates: start: 201307
  3. CIALIS [Concomitant]
     Indication: ERECTILE DYSFUNCTION
     Dates: start: 201307

REACTIONS (2)
  - Ejaculation failure [Recovered/Resolved]
  - Blood testosterone decreased [Unknown]
